FAERS Safety Report 4459477-8 (Version None)
Quarter: 2004Q3

REPORT INFORMATION
  Report Type: 
  Country: None (occurrence: None)
  Receive Date: 20040927
  Receipt Date: 20040702
  Transmission Date: 20050211
  Serious: Yes (Hospitalization)
  Sender: FDA-Public Use
  Company Number: BE-ABBOTT-04P-013-0266119-00

PATIENT
  Sex: Male
  Weight: 113 kg

DRUGS (5)
  1. REDUCTIL [Suspect]
     Indication: OBESITY
     Route: 048
     Dates: start: 20040301, end: 20040601
  2. REDUCTIL [Suspect]
     Route: 048
     Dates: start: 20031101, end: 20031201
  3. REDUCTIL [Suspect]
     Dates: start: 20040801
  4. CHLORTALIDONE [Concomitant]
     Indication: HYPERTENSION
     Route: 048
     Dates: end: 20040604
  5. CHLORTALIDONE [Concomitant]
     Route: 048
     Dates: start: 20040701

REACTIONS (3)
  - FATIGUE [None]
  - HEPATIC STEATOSIS [None]
  - HEPATITIS TOXIC [None]
